FAERS Safety Report 6399966-2 (Version None)
Quarter: 2009Q4

REPORT INFORMATION
  Report Type: 
  Country: None (occurrence: None)
  Receive Date: 20091008
  Receipt Date: 20091008
  Transmission Date: 20100525
  Serious: Yes (Life-Threatening)
  Sender: FDA-Public Use
  Company Number: None

PATIENT
  Sex: Male

DRUGS (1)
  1. IRON DEXTRAN [Suspect]
     Indication: MINERAL SUPPLEMENTATION
     Dosage: 25MG ONCE IV BOLUS
     Route: 040
     Dates: start: 20080922, end: 20080922

REACTIONS (3)
  - BONE PAIN [None]
  - DYSPNOEA [None]
  - MENTAL STATUS CHANGES [None]
